FAERS Safety Report 4417742-4 (Version None)
Quarter: 2004Q3

REPORT INFORMATION
  Report Type: 
  Country: None (occurrence: None)
  Receive Date: 20040803
  Receipt Date: 20040721
  Transmission Date: 20050211
  Serious: Yes (Death)
  Sender: FDA-Public Use
  Company Number: JP-JNJFOC-20040706053

PATIENT

DRUGS (2)
  1. FENTANYL [Suspect]
     Indication: CANCER PAIN
     Dosage: TRANSDERMAL
     Route: 062
  2. OXYCODONE HCL [Concomitant]

REACTIONS (2)
  - APPLICATION SITE PRURITUS [None]
  - DERMATITIS CONTACT [None]
